FAERS Safety Report 7529373-8 (Version None)
Quarter: 2011Q2

REPORT INFORMATION
  Report Type: 
  Country: None (occurrence: None)
  Receive Date: 20110520
  Receipt Date: 20110131
  Transmission Date: 20111010
  Serious: No
  Sender: FDA-Public Use
  Company Number: 026637

PATIENT
  Sex: Female

DRUGS (1)
  1. LACOSAMIDE [Suspect]
     Dosage: (100 MG BID ORAL)
     Route: 048
     Dates: start: 20110124

REACTIONS (3)
  - VISION BLURRED [None]
  - NIGHT SWEATS [None]
  - DIPLOPIA [None]
